FAERS Safety Report 6774595-7 (Version None)
Quarter: 2010Q2

REPORT INFORMATION
  Report Type: 
  Country: None (occurrence: None)
  Receive Date: 20100617
  Receipt Date: 20100608
  Transmission Date: 20101027
  Serious: Yes (Other)
  Sender: FDA-Public Use
  Company Number: JP-BAXTER-2010BH012947

PATIENT
  Sex: Male
  Weight: 85 kg

DRUGS (2)
  1. ADVATE [Suspect]
     Indication: FACTOR VIII DEFICIENCY
     Route: 042
     Dates: start: 20070101
  2. ADVATE [Suspect]
     Route: 042
     Dates: start: 20070101

REACTIONS (1)
  - MOYAMOYA DISEASE [None]
